FAERS Safety Report 25131038 (Version 1)
Quarter: 2025Q1

REPORT INFORMATION
  Report Type: Spontaneous
  Country: DE (occurrence: DE)
  Receive Date: 20250327
  Receipt Date: 20250327
  Transmission Date: 20250409
  Serious: Yes (Other)
  Sender: PFIZER
  Company Number: DE-PFIZER INC-202500065792

PATIENT
  Age: 86 Year
  Sex: Female

DRUGS (1)
  1. IBRANCE [Suspect]
     Active Substance: PALBOCICLIB
     Dates: start: 2016

REACTIONS (4)
  - Cataract [Unknown]
  - Red blood cell count decreased [Unknown]
  - Eye irritation [Unknown]
  - Lacrimation increased [Unknown]
